FAERS Safety Report 12371671 (Version 1)
Quarter: 2016Q2

REPORT INFORMATION
  Report Type: Spontaneous
  Country: US (occurrence: US)
  Receive Date: 20160516
  Receipt Date: 20160516
  Transmission Date: 20160815
  Serious: No
  Sender: FDA-Public Use
  Company Number: US-GLAXOSMITHKLINE-US2016067069

PATIENT
  Age: 49 Year
  Sex: Female

DRUGS (1)
  1. BUPROPION PROLONGED-RELEASE TABLET [Suspect]
     Active Substance: BUPROPION
     Indication: AFFECTIVE DISORDER
     Dosage: 300 MG, QD
     Route: 048
     Dates: start: 201605

REACTIONS (1)
  - Rash [Unknown]

NARRATIVE: CASE EVENT DATE: 201605
